FAERS Safety Report 9548711 (Version 1)
Quarter: 2013Q3

REPORT INFORMATION
  Report Type: Spontaneous
  Country: US (occurrence: None)
  Receive Date: 20130923
  Receipt Date: 20130923
  Transmission Date: 20140515
  Serious: Yes (Disabling)
  Sender: FDA-Public Use
  Company Number: None

PATIENT
  Age: 58 Year
  Sex: Male
  Weight: 81.65 kg

DRUGS (1)
  1. APO TRIAZIDE 50/25 MG [Suspect]
     Dosage: ONE PILL; ONCE DAILY
     Route: 048

REACTIONS (3)
  - Gout [None]
  - Pain [None]
  - Impaired work ability [None]
